FAERS Safety Report 16235457 (Version 1)
Quarter: 2019Q2

REPORT INFORMATION
  Report Type: Spontaneous
  Country: DE (occurrence: DE)
  Receive Date: 20190424
  Receipt Date: 20190424
  Transmission Date: 20190711
  Serious: Yes (Other)
  Sender: FDA-Public Use
  Company Number: PHHY2019DE090450

PATIENT
  Sex: Female

DRUGS (1)
  1. ISOPTO-MAXITROL [Suspect]
     Active Substance: DEXAMETHASONE\NEOMYCIN SULFATE\POLYMYXIN B SULFATE
     Indication: EYE INFLAMMATION
     Dosage: UNK
     Route: 047

REACTIONS (4)
  - Eye haemorrhage [Unknown]
  - Ocular hyperaemia [Unknown]
  - Eye infection fungal [Unknown]
  - Eyelid disorder [Unknown]
